FAERS Safety Report 6236667-5 (Version None)
Quarter: 2009Q2

REPORT INFORMATION
  Report Type: 
  Country: None (occurrence: None)
  Receive Date: 20090619
  Receipt Date: 20090113
  Transmission Date: 20091009
  Serious: No
  Sender: FDA-Public Use
  Company Number: US-ASTRAZENECA-2009UW01149

PATIENT
  Age: 77 Year
  Sex: Female
  Weight: 74.8 kg

DRUGS (3)
  1. ATACAND HCT [Suspect]
     Dosage: 32/12.5 MG
     Route: 048
  2. TOPROL-XL [Concomitant]
     Route: 048
  3. LOTENSIN [Concomitant]

REACTIONS (2)
  - BLOOD PRESSURE DECREASED [None]
  - MEDICATION ERROR [None]
